FAERS Safety Report 4360543-6 (Version None)
Quarter: 2004Q2

REPORT INFORMATION
  Report Type: 
  Country: None (occurrence: None)
  Receive Date: 20040519
  Receipt Date: 20040517
  Transmission Date: 20050107
  Serious: Yes (Life-Threatening)
  Sender: FDA-Public Use
  Company Number: FR-GLAXOSMITHKLINE-B0332868A

PATIENT
  Age: 82 Year
  Sex: Female
  Weight: 72 kg

DRUGS (1)
  1. AUGMENTIN [Suspect]
     Dosage: 2G SINGLE DOSE
     Route: 042
     Dates: start: 20040327, end: 20040327

REACTIONS (4)
  - CYANOSIS [None]
  - GENERALISED ERYTHEMA [None]
  - LOSS OF CONSCIOUSNESS [None]
  - MALAISE [None]
